FAERS Safety Report 9380713 (Version 1)
Quarter: 2013Q3

REPORT INFORMATION
  Report Type: Spontaneous
  Country: FR (occurrence: FR)
  Receive Date: 20130702
  Receipt Date: 20130702
  Transmission Date: 20140515
  Serious: Yes (Death)
  Sender: FDA-Public Use
  Company Number: FR-BAXTER-2013BAX024388

PATIENT
  Age: 76 Year
  Sex: Male

DRUGS (6)
  1. SEVOFLURANE [Suspect]
     Indication: SURGERY
     Route: 055
     Dates: start: 20121211
  2. HEPARINE SODIQUE [Suspect]
     Indication: HAEMORRHAGIC DISORDER
     Route: 042
     Dates: start: 20121211, end: 20121212
  3. HYPNOMIDATE [Suspect]
     Indication: SURGERY
     Route: 042
     Dates: start: 20121211
  4. NIMBEX [Suspect]
     Indication: SURGERY
     Route: 042
     Dates: start: 20121211
  5. VANCOMYCINE MYLAN [Suspect]
     Indication: SURGERY
     Route: 065
     Dates: start: 20121211
  6. PROTAMINE [Suspect]
     Indication: HAEMORRHAGIC DISORDER
     Route: 042
     Dates: start: 20121211

REACTIONS (4)
  - Haemodynamic instability [Fatal]
  - Hypoxia [Unknown]
  - Blood pressure decreased [None]
  - Heart rate increased [None]
